FAERS Safety Report 13767685 (Version 1)
Quarter: 2017Q3

REPORT INFORMATION
  Report Type: Spontaneous
  Country: DE (occurrence: DE)
  Receive Date: 20170719
  Receipt Date: 20170719
  Transmission Date: 20171127
  Serious: Yes (Congenital Anomaly, Other)
  Sender: FDA-Public Use
  Company Number: DE-PFIZER INC-2017306527

PATIENT
  Sex: Male
  Weight: 1.21 kg

DRUGS (4)
  1. SERTRALINE HCL [Suspect]
     Active Substance: SERTRALINE HYDROCHLORIDE
     Indication: DEPRESSION
     Dosage: 50 MG, 1X/DAY (0. -27.2 GESTATIONAL WEEK)
     Route: 064
     Dates: start: 20151225, end: 20160703
  2. L-THYROXIN [Concomitant]
     Active Substance: LEVOTHYROXINE SODIUM
     Indication: HYPOTHYROIDISM
     Dosage: 50 UG, 1X/DAY (0. -27.2 GESTATIONAL WEEK)
     Route: 064
     Dates: start: 20151225, end: 20160703
  3. FOLIC ACID. [Concomitant]
     Active Substance: FOLIC ACID
     Indication: PROPHYLAXIS OF NEURAL TUBE DEFECT
     Dosage: 0. - 5.4 GESTATIONAL WEEK
     Route: 064
     Dates: start: 20151225, end: 20160202
  4. BETAMETHASONE. [Concomitant]
     Active Substance: BETAMETHASONE
     Indication: MATERNAL THERAPY TO ENHANCE FOETAL LUNG MATURITY
     Dosage: 26.5 - 26.6 GESTATIONAL WEEK
     Route: 064
     Dates: start: 20160629, end: 20160630

REACTIONS (11)
  - Haemangioma congenital [Not Recovered/Not Resolved]
  - Patent ductus arteriosus [Recovered/Resolved]
  - Nephrocalcinosis [Unknown]
  - Microphthalmos [Not Recovered/Not Resolved]
  - Skin indentation [Not Recovered/Not Resolved]
  - Coordination abnormal [Unknown]
  - Premature rupture of membranes [Unknown]
  - Maternal exposure during pregnancy [Unknown]
  - Plagiocephaly [Unknown]
  - Meningoencephalitis viral [Recovered/Resolved]
  - Premature baby [Unknown]

NARRATIVE: CASE EVENT DATE: 20160703
